FAERS Safety Report 9752205 (Version 1)
Quarter: 2013Q4

REPORT INFORMATION
  Report Type: Spontaneous
  Country: US (occurrence: None)
  Receive Date: 20131211
  Receipt Date: 20131211
  Transmission Date: 20140711
  Serious: Yes (Other)
  Sender: FDA-Public Use
  Company Number: None

PATIENT
  Age: 44 Year
  Sex: Male
  Weight: 90.27 kg

DRUGS (1)
  1. MODAFINIL [Suspect]
     Indication: SOMNOLENCE
     Dosage: 100MG, 1-2 PO QD, PO
     Route: 048
     Dates: start: 201306

REACTIONS (1)
  - Pruritus [None]
